FAERS Safety Report 4465082-X (Version None)
Quarter: 2004Q4

REPORT INFORMATION
  Report Type: 
  Country: None (occurrence: None)
  Receive Date: 20041004
  Receipt Date: 20040927
  Transmission Date: 20050328
  Serious: Yes (Life-Threatening, Hospitalization)
  Sender: FDA-Public Use
  Company Number: AU-BRISTOL-MYERS SQUIBB COMPANY-12713285

PATIENT
  Age: 72 Year
  Sex: Female

DRUGS (6)
  1. CYCLOPHOSPHAMIDE [Suspect]
     Indication: CHEMOTHERAPY
     Dates: start: 20040517, end: 20040517
  2. VINCRISTINE SULFATE [Suspect]
     Indication: CHEMOTHERAPY
     Dates: start: 20040517, end: 20040517
  3. NEULASTA [Suspect]
     Indication: CHEMOTHERAPY
     Dosage: PREFILLED SYRINGE
     Dates: start: 20040518, end: 20040518
  4. RITUXIMAB [Suspect]
     Indication: CHEMOTHERAPY
     Dates: start: 20040517, end: 20040517
  5. PREDNISONE [Suspect]
     Indication: CHEMOTHERAPY
     Route: 048
     Dates: start: 20040517, end: 20040517
  6. CORTICOSTEROID [Concomitant]

REACTIONS (3)
  - AGRANULOCYTOSIS [None]
  - DRUG INEFFECTIVE [None]
  - SEPTIC SHOCK [None]
